FAERS Safety Report 8522266-9 (Version None)
Quarter: 2012Q3

REPORT INFORMATION
  Report Type: 
  Country: None (occurrence: None)
  Receive Date: 20120719
  Receipt Date: 20120709
  Transmission Date: 20120928
  Serious: Yes (Hospitalization)
  Sender: FDA-Public Use
  Company Number: JP-VERTEX PHARMACEUTICALS INC.-AE-2012-010251

PATIENT
  Age: 65 Year
  Sex: Female

DRUGS (6)
  1. REBETOL [Concomitant]
     Route: 048
     Dates: start: 20120607, end: 20120613
  2. REBETOL [Concomitant]
     Route: 048
     Dates: start: 20120614
  3. REBETOL [Concomitant]
     Indication: HEPATITIS C
     Route: 048
     Dates: start: 20120517, end: 20120606
  4. TELAVIC (TELAPREVIR) [Suspect]
     Route: 048
     Dates: start: 20120607, end: 20120705
  5. PEG-INTRON [Concomitant]
     Indication: HEPATITIS C
     Route: 058
     Dates: start: 20120517
  6. TELAVIC (TELAPREVIR) [Suspect]
     Indication: HEPATITIS C
     Route: 048
     Dates: start: 20120517, end: 20120605

REACTIONS (1)
  - RASH GENERALISED [None]
